FAERS Safety Report 25385029 (Version 1)
Quarter: 2025Q2

REPORT INFORMATION
  Report Type: Spontaneous
  Country: CN (occurrence: CN)
  Receive Date: 20250602
  Receipt Date: 20250602
  Transmission Date: 20250716
  Serious: Yes (Hospitalization)
  Sender: BEIGENE
  Company Number: CN-BEIGENE-BGN-2025-008460

PATIENT
  Age: 67 Year
  Weight: 50.5 kg

DRUGS (12)
  1. TISLELIZUMAB [Suspect]
     Active Substance: TISLELIZUMAB
     Indication: Adenocarcinoma gastric
  2. TISLELIZUMAB [Suspect]
     Active Substance: TISLELIZUMAB
     Route: 041
  3. TISLELIZUMAB [Suspect]
     Active Substance: TISLELIZUMAB
     Route: 041
  4. TISLELIZUMAB [Suspect]
     Active Substance: TISLELIZUMAB
  5. DOCETAXEL [Suspect]
     Active Substance: DOCETAXEL
     Indication: Adenocarcinoma gastric
     Route: 041
  6. DOCETAXEL [Suspect]
     Active Substance: DOCETAXEL
  7. GIMERACIL\OTERACIL\TEGAFUR [Suspect]
     Active Substance: GIMERACIL\OTERACIL POTASSIUM\TEGAFUR
     Indication: Adenocarcinoma gastric
     Dosage: 50 MILLIGRAM, Q3WK,D1-14 BID
     Route: 048
  8. GIMERACIL\OTERACIL\TEGAFUR [Suspect]
     Active Substance: GIMERACIL\OTERACIL POTASSIUM\TEGAFUR
     Dosage: 50 MILLIGRAM, Q3WK,D1-14 BID
  9. SODIUM CHLORIDE [Concomitant]
     Active Substance: SODIUM CHLORIDE
     Indication: Vehicle solution use
     Dosage: 100 MILLILITER, QD
     Route: 041
  10. SODIUM CHLORIDE [Concomitant]
     Active Substance: SODIUM CHLORIDE
     Dosage: 100 MILLILITER, QD
  11. DEXTROSE [Concomitant]
     Active Substance: DEXTROSE MONOHYDRATE
     Indication: Vehicle solution use
     Dosage: 250 MILLILITER, QD
     Route: 041
  12. DEXTROSE [Concomitant]
     Active Substance: DEXTROSE MONOHYDRATE
     Dosage: 250 MILLILITER, QD

REACTIONS (1)
  - Myelosuppression [Recovering/Resolving]
